FAERS Safety Report 15409247 (Version 1)
Quarter: 2018Q3

REPORT INFORMATION
  Report Type: Spontaneous
  Country: US (occurrence: US)
  Receive Date: 20180920
  Receipt Date: 20180920
  Transmission Date: 20181010
  Serious: Yes (Death, Hospitalization)
  Sender: FDA-Public Use
  Company Number: US-CHIESI USA INC.-US-2018CHI000243

PATIENT
  Age: 73 Year
  Sex: Female

DRUGS (1)
  1. TOBRAMYCIN. [Suspect]
     Active Substance: TOBRAMYCIN
     Indication: EYE INFECTION
     Dosage: UNK, EVERY 2?3 H

REACTIONS (1)
  - Myasthenia gravis [Fatal]
